FAERS Safety Report 7030712-5 (Version None)
Quarter: 2010Q4

REPORT INFORMATION
  Report Type: 
  Country: None (occurrence: None)
  Receive Date: 20101006
  Receipt Date: 20100927
  Transmission Date: 20110411
  Serious: Yes (Other)
  Sender: FDA-Public Use
  Company Number: DE-PURDUE-GBR-2010-0007047

PATIENT
  Age: 17 Year
  Sex: Female

DRUGS (8)
  1. THEOPHYLLINE [Suspect]
     Indication: ASTHMA
     Dosage: 500 MG, BID
  2. NON-PMN THEOPHYLLINE [Suspect]
     Indication: ASTHMA
     Route: 042
  3. ALBUTEROL [Suspect]
     Indication: ASTHMA
     Dosage: 0.2 MG, EVERY 2-3 HOURS
     Route: 055
  4. ALBUTEROL [Suspect]
     Route: 042
  5. PREDNISOLONE [Concomitant]
     Dosage: 50 MG, BID
     Route: 042
  6. BUDESONIDE [Concomitant]
     Dosage: 800 MCG, BID
     Route: 055
  7. FORMOTEROL FUMARATE [Concomitant]
     Dosage: 12 MCG, BID
  8. MONTELUKAST [Concomitant]
     Dosage: 10 MG, DAILY

REACTIONS (1)
  - HYPERLACTACIDAEMIA [None]
